FAERS Safety Report 24444792 (Version 2)
Quarter: 2024Q4

REPORT INFORMATION
  Report Type: Report from Study
  Country: US (occurrence: US)
  Receive Date: 20241016
  Receipt Date: 20241017
  Transmission Date: 20250114
  Serious: No
  Sender: ROCHE
  Company Number: US-ROCHE-2949268

PATIENT
  Age: 50 Year
  Sex: Female
  Weight: 146.0 kg

DRUGS (4)
  1. RITUXAN [Suspect]
     Active Substance: RITUXIMAB
     Indication: Microscopic polyangiitis
     Dosage: DATE OF TREATMENT : 12/NOV/2021, 20/MAY/2022, 25/AUG/2022 (700 MG), 28/NOV/2022,  01/MAY/2023, DATE
     Route: 041
  2. RITUXAN [Suspect]
     Active Substance: RITUXIMAB
     Route: 041
  3. RITUXAN [Suspect]
     Active Substance: RITUXIMAB
     Route: 041
  4. RITUXAN [Suspect]
     Active Substance: RITUXIMAB
     Route: 041

REACTIONS (2)
  - Off label use [Unknown]
  - No adverse event [Unknown]
